FAERS Safety Report 24356349 (Version 1)
Quarter: 2024Q3

REPORT INFORMATION
  Report Type: Report from Study
  Country: US (occurrence: US)
  Receive Date: 20240924
  Receipt Date: 20240924
  Transmission Date: 20241016
  Serious: Yes (Other)
  Sender: EMD SERONO INC
  Company Number: US-Merck Healthcare KGaA-2024039298

PATIENT
  Sex: Male

DRUGS (1)
  1. REBIF [Suspect]
     Active Substance: INTERFERON BETA-1A
     Indication: Multiple sclerosis
     Route: 058
     Dates: start: 20240617

REACTIONS (4)
  - Nasopharyngitis [Unknown]
  - Illness [Unknown]
  - Optic neuritis [Not Recovered/Not Resolved]
  - Optic nerve injury [Recovered/Resolved]
